FAERS Safety Report 7464972-3 (Version None)
Quarter: 2011Q2

REPORT INFORMATION
  Report Type: 
  Country: None (occurrence: None)
  Receive Date: 20110509
  Receipt Date: 20110426
  Transmission Date: 20111010
  Serious: Yes (Hospitalization, Other)
  Sender: FDA-Public Use
  Company Number: US-JNJFOC-20110412202

PATIENT
  Sex: Female

DRUGS (4)
  1. FENTANYL-100 [Suspect]
     Indication: PAIN
     Route: 062
  2. FENTANYL [Suspect]
     Route: 062
  3. NORVASC [Concomitant]
     Indication: HYPERTENSION
     Route: 048
  4. FENTANYL [Suspect]
     Indication: PAIN
     Route: 062

REACTIONS (8)
  - WEIGHT DECREASED [None]
  - BACK INJURY [None]
  - FALL [None]
  - DIABETES MELLITUS [None]
  - HYPERTENSION [None]
  - BIPOLAR DISORDER [None]
  - EATING DISORDER [None]
  - DRUG INEFFECTIVE [None]
